FAERS Safety Report 4539749-9 (Version None)
Quarter: 2004Q4

REPORT INFORMATION
  Report Type: 
  Country: None (occurrence: None)
  Receive Date: 20041222
  Receipt Date: 20041209
  Transmission Date: 20050328
  Serious: Yes (Other)
  Sender: FDA-Public Use
  Company Number: 2004067383

PATIENT
  Age: 48 Year
  Sex: Female

DRUGS (3)
  1. GEODON [Suspect]
     Indication: BIPOLAR I DISORDER
     Dosage: 160 MG (80 MG, 2 IN 1 D),
     Dates: start: 20040812
  2. VENLAFAXINE HCL [Concomitant]
  3. HALOPERIDOL [Concomitant]

REACTIONS (3)
  - DYSMENORRHOEA [None]
  - HAEMATOCRIT DECREASED [None]
  - MENORRHAGIA [None]
